APPROVED DRUG PRODUCT: QUETIAPINE FUMARATE
Active Ingredient: QUETIAPINE FUMARATE
Strength: EQ 400MG BASE
Dosage Form/Route: TABLET;ORAL
Application: A206954 | Product #006 | TE Code: AB
Applicant: PRINSTON PHARMACEUTICAL INC
Approved: Aug 24, 2022 | RLD: No | RS: No | Type: RX